FAERS Safety Report 7583251-7 (Version None)
Quarter: 2011Q2

REPORT INFORMATION
  Report Type: 
  Country: None (occurrence: None)
  Receive Date: 20110630
  Receipt Date: 20110624
  Transmission Date: 20111010
  Serious: Yes (Other)
  Sender: FDA-Public Use
  Company Number: TR-ACTELION-A-CH2011-50835

PATIENT
  Age: 17 Month
  Sex: Male

DRUGS (2)
  1. ANTIBIOTICS [Concomitant]
  2. TRACLEER [Suspect]
     Indication: PULMONARY ARTERIAL HYPERTENSION
     Dosage: 62.5 MG, BID
     Route: 048

REACTIONS (3)
  - VENTRICULAR SEPTAL DEFECT REPAIR [None]
  - PYREXIA [None]
  - INFECTION [None]
